FAERS Safety Report 17788527 (Version 5)
Quarter: 2020Q2

REPORT INFORMATION
  Report Type: Report from Study
  Country: AU (occurrence: AU)
  Receive Date: 20200514
  Receipt Date: 20200624
  Transmission Date: 20200714
  Serious: Yes (Other)
  Sender: FDA-Public Use
  Company Number: AU-JNJFOC-20200507518

PATIENT
  Age: 48 Year
  Sex: Female

DRUGS (2)
  1. STELARA [Suspect]
     Active Substance: USTEKINUMAB
     Indication: PSORIASIS
     Route: 058
  2. STELARA [Suspect]
     Active Substance: USTEKINUMAB

REACTIONS (13)
  - Fibromyalgia [Unknown]
  - Oropharyngeal pain [Unknown]
  - Product use issue [Unknown]
  - Migraine [Unknown]
  - Diabetes mellitus [Unknown]
  - Syncope [Unknown]
  - Malaise [Unknown]
  - Intestinal stenosis [Unknown]
  - Carpal tunnel syndrome [Unknown]
  - Pyrexia [Unknown]
  - Off label use [Unknown]
  - Fatigue [Unknown]
  - Cough [Unknown]

NARRATIVE: CASE EVENT DATE: 201909
